FAERS Safety Report 23332940 (Version 1)
Quarter: 2023Q4

REPORT INFORMATION
  Report Type: Spontaneous
  Country: IT (occurrence: IT)
  Receive Date: 20231222
  Receipt Date: 20231222
  Transmission Date: 20240110
  Serious: Yes (Other)
  Sender: FDA-Public Use
  Company Number: IT-SUN PHARMACEUTICAL INDUSTRIES LTD-2023RR-424758

PATIENT
  Age: 64 Year
  Sex: Male

DRUGS (1)
  1. OXALIPLATIN [Suspect]
     Active Substance: OXALIPLATIN
     Indication: Colon cancer
     Dosage: 120 MG EVERY 14 DAYS
     Route: 040
     Dates: start: 20230830, end: 20230830

REACTIONS (2)
  - Hypertensive crisis [Unknown]
  - Vomiting [Unknown]

NARRATIVE: CASE EVENT DATE: 20230830
